FAERS Safety Report 22273768 (Version 4)
Quarter: 2023Q4

REPORT INFORMATION
  Report Type: Report from Study
  Country: US (occurrence: US)
  Receive Date: 20230502
  Receipt Date: 20231011
  Transmission Date: 20240110
  Serious: Yes (Other)
  Sender: FDA-Public Use
  Company Number: US-UCBSA-2023002149

PATIENT
  Sex: Female

DRUGS (8)
  1. FINTEPLA [Suspect]
     Active Substance: FENFLURAMINE
     Indication: Severe myoclonic epilepsy of infancy
     Dosage: 2.5 MILLILITER, 2X/DAY (BID)
     Dates: start: 20200916
  2. FINTEPLA [Suspect]
     Active Substance: FENFLURAMINE
     Dosage: 2.5 MILLILITER, 2X/DAY (BID)
  3. FINTEPLA [Suspect]
     Active Substance: FENFLURAMINE
     Dosage: 2.7 MILLILITER, 2X/DAY (BID)
  4. FINTEPLA [Suspect]
     Active Substance: FENFLURAMINE
     Dosage: 2.7 MILLILITER, 2X/DAY (BID)
  5. FINTEPLA [Suspect]
     Active Substance: FENFLURAMINE
     Dosage: 2.7 MILLILITER, 2X/DAY (BID)
  6. FINTEPLA [Suspect]
     Active Substance: FENFLURAMINE
     Dosage: 2.7 MILLILITER, 2X/DAY (BID)
  7. FINTEPLA [Suspect]
     Active Substance: FENFLURAMINE
     Dosage: 2.7 MILLILITER, 2X/DAY (BID)
  8. FINTEPLA [Suspect]
     Active Substance: FENFLURAMINE
     Dosage: 2.7 MILLILITER, 2X/DAY (BID)

REACTIONS (13)
  - Seizure [Not Recovered/Not Resolved]
  - Fall [Recovered/Resolved]
  - Contusion [Recovered/Resolved]
  - Wound [Recovered/Resolved]
  - Tooth fracture [Recovered/Resolved]
  - Tooth loss [Recovered/Resolved]
  - COVID-19 [Recovered/Resolved]
  - Pyrexia [Unknown]
  - Behaviour disorder [Not Recovered/Not Resolved]
  - Aggression [Not Recovered/Not Resolved]
  - Depression [Not Recovered/Not Resolved]
  - Crying [Not Recovered/Not Resolved]
  - Expired product administered [Unknown]

NARRATIVE: CASE EVENT DATE: 20230101
